FAERS Safety Report 5179777-6 (Version None)
Quarter: 2006Q4

REPORT INFORMATION
  Report Type: 
  Country: None (occurrence: None)
  Receive Date: 20061212
  Receipt Date: 20061201
  Transmission Date: 20070319
  Serious: Yes (Death)
  Sender: FDA-Public Use
  Company Number: 2006149416

PATIENT
  Age: 61 Year
  Sex: Male

DRUGS (8)
  1. NORVASC [Suspect]
     Indication: HYPERTENSION
     Dosage: 10 MG, ORAL
     Route: 048
     Dates: start: 20060119, end: 20061127
  2. ZANTAC [Suspect]
     Indication: GASTRIC ULCER
     Dosage: 150 MG, ORAL
     Route: 048
     Dates: start: 20030106, end: 20061127
  3. OLMETEC (OLMESARTAN) [Suspect]
     Indication: HYPERTENSION
     Dosage: 40 MG, ORAL
     Route: 048
     Dates: start: 20040807, end: 20061127
  4. PRAVASTATIN [Suspect]
     Indication: HYPERLIPIDAEMIA
     Dosage: 10 MG, ORAL
     Route: 048
     Dates: start: 20060309, end: 20061127
  5. ETIZOLAM (ETIZOLAM) [Suspect]
     Dosage: 1.5 MG, ORAL
     Route: 048
     Dates: end: 20061127
  6. PL GRAN. (CAFFEINE, PARACETAMOL, PROMETHAZINE METHYLENE DISALICYLATE, [Concomitant]
  7. SERRAPEPTASE (SERRAPEPTASE) [Concomitant]
  8. HUSCODE (CHLORPHENAMINE MALEATE, DIHYDROCODEINE PHOSPHATE, METHYLEPHED [Concomitant]

REACTIONS (4)
  - HYPERLIPIDAEMIA [None]
  - HYPERTENSION [None]
  - INFLUENZA LIKE ILLNESS [None]
  - INTERSTITIAL LUNG DISEASE [None]
